FAERS Safety Report 8598494 (Version 2)
Quarter: 2013Q3

REPORT INFORMATION
  Report Type: Spontaneous
  Country: US (occurrence: US)
  Receive Date: 20120605
  Receipt Date: 20130725
  Transmission Date: 20140515
  Serious: No
  Sender: FDA-Public Use
  Company Number: US-ASTRAZENECA-2012SE34533

PATIENT
  Sex: Female

DRUGS (5)
  1. NEXIUM [Suspect]
     Indication: COUGH
     Route: 048
     Dates: start: 2002
  2. NEXIUM [Suspect]
     Indication: HYPERCHLORHYDRIA
     Route: 048
     Dates: start: 2002
  3. PRILOSEC [Suspect]
     Indication: COUGH
     Dosage: TWICE DAILY
     Route: 048
     Dates: start: 2002
  4. PRILOSEC [Suspect]
     Indication: HYPERCHLORHYDRIA
     Dosage: TWICE DAILY
     Route: 048
     Dates: start: 2002
  5. TUMS [Concomitant]
     Dosage: ONCE A DAY
     Dates: start: 1999, end: 2000

REACTIONS (2)
  - Osteoporosis [Unknown]
  - Multiple fractures [Unknown]
